FAERS Safety Report 15484444 (Version 2)
Quarter: 2018Q4

REPORT INFORMATION
  Report Type: Spontaneous
  Country: GB (occurrence: GB)
  Receive Date: 20181010
  Receipt Date: 20181115
  Transmission Date: 20190205
  Serious: Yes (Hospitalization, Other)
  Sender: FDA-Public Use
  Company Number: GB-JNJFOC-20181012648

PATIENT
  Sex: Female

DRUGS (1)
  1. SIMPONI [Suspect]
     Active Substance: GOLIMUMAB
     Indication: PRODUCT USED FOR UNKNOWN INDICATION
     Route: 058

REACTIONS (3)
  - Hip arthroplasty [Not Recovered/Not Resolved]
  - Device dislocation [Not Recovered/Not Resolved]
  - Localised infection [Unknown]
